FAERS Safety Report 4537438-8 (Version None)
Quarter: 2004Q4

REPORT INFORMATION
  Report Type: 
  Country: None (occurrence: None)
  Receive Date: 20041216
  Receipt Date: 20040426
  Transmission Date: 20050328
  Serious: Yes (Hospitalization)
  Sender: FDA-Public Use
  Company Number: HQWYE615227APR04

PATIENT
  Age: 35 Year
  Sex: Male
  Weight: 90.8 kg

DRUGS (6)
  1. EFFEXOR XR [Suspect]
     Indication: OBSESSIVE-COMPULSIVE DISORDER
     Dosage: 75 MG 2X PER 1 DAY, ORAL
     Route: 048
     Dates: start: 20040401, end: 20040425
  2. XANAX [Concomitant]
  3. LAMICTAL [Concomitant]
  4. NEXIUM (ESOMPRAZOLE) [Concomitant]
  5. VALIUM [Concomitant]
  6. ORAP [Concomitant]

REACTIONS (1)
  - CONVULSION [None]
